FAERS Safety Report 6525229-8 (Version None)
Quarter: 2009Q4

REPORT INFORMATION
  Report Type: 
  Country: None (occurrence: None)
  Receive Date: 20091222
  Receipt Date: 20091210
  Transmission Date: 20100525
  Serious: Yes (Other)
  Sender: FDA-Public Use
  Company Number: 2009SP041166

PATIENT
  Age: 77 Year
  Sex: Female

DRUGS (4)
  1. MIRTAZAPINE [Suspect]
     Indication: INSOMNIA
     Dosage: 15 MG; QD; PO
     Route: 048
     Dates: start: 20091203, end: 20091209
  2. FLUVASTATIN SODIUM [Concomitant]
  3. VALSARTAN [Concomitant]
  4. ETIZOLAM [Concomitant]

REACTIONS (2)
  - AGGRESSION [None]
  - LIBIDO INCREASED [None]
